FAERS Safety Report 26216400 (Version 1)
Quarter: 2025Q4

REPORT INFORMATION
  Report Type: Spontaneous
  Country: US (occurrence: US)
  Receive Date: 20251231
  Receipt Date: 20251231
  Transmission Date: 20260118
  Serious: No
  Sender: BRISTOL-MYERS SQUIBB COMPANY
  Company Number: US-BRISTOL-MYERS SQUIBB COMPANY-2025-174192

PATIENT
  Age: 78 Year
  Sex: Female

DRUGS (3)
  1. ORENCIA [Suspect]
     Active Substance: ABATACEPT
     Indication: Rheumatoid arthritis
     Route: 058
     Dates: start: 202510
  2. KEVZARA [Concomitant]
     Active Substance: SARILUMAB
     Indication: Osteoarthritis
     Dosage: PEN (2 PENS/BOX)
  3. KEVZARA [Concomitant]
     Active Substance: SARILUMAB
     Indication: Lymphadenopathy

REACTIONS (2)
  - Rheumatoid arthritis [Unknown]
  - Drug effect less than expected [Unknown]

NARRATIVE: CASE EVENT DATE: 20251101
